FAERS Safety Report 21382499 (Version 1)
Quarter: 2022Q3

REPORT INFORMATION
  Report Type: Spontaneous
  Country: US (occurrence: US)
  Receive Date: 20220927
  Receipt Date: 20220927
  Transmission Date: 20221027
  Serious: No
  Sender: FDA-Public Use
  Company Number: US-INCYTE CORPORATION-2022IN009042

PATIENT

DRUGS (1)
  1. JAKAFI [Suspect]
     Active Substance: RUXOLITINIB
     Indication: Myelofibrosis
     Dosage: TAKE 1/2 TABLET IN THE MORNING AND I TABLET IN THE EVENING
     Route: 048
     Dates: start: 202206

REACTIONS (2)
  - Wrong technique in product usage process [Unknown]
  - Flatulence [Unknown]
